FAERS Safety Report 6164434-X (Version None)
Quarter: 2009Q2

REPORT INFORMATION
  Report Type: 
  Country: None (occurrence: None)
  Receive Date: 20090422
  Receipt Date: 20090319
  Transmission Date: 20091009
  Serious: Yes (Other)
  Sender: FDA-Public Use
  Company Number: CN-GENENTECH-278087

PATIENT

DRUGS (2)
  1. RITUXIMAB [Suspect]
     Indication: B-CELL LYMPHOMA
     Route: 065
  2. CHEMOTHERAPY (UNK INGREDIENTS) [Concomitant]
     Indication: B-CELL LYMPHOMA

REACTIONS (1)
  - LIVER INJURY [None]
